FAERS Safety Report 17764561 (Version 2)
Quarter: 2020Q3

REPORT INFORMATION
  Report Type: Spontaneous
  Country: IT (occurrence: IT)
  Receive Date: 20200511
  Receipt Date: 20200828
  Transmission Date: 20201102
  Serious: Yes (Death, Hospitalization)
  Sender: FDA-Public Use
  Company Number: IT-SA-2020SA120095

PATIENT

DRUGS (2)
  1. CLEXANE [Suspect]
     Active Substance: ENOXAPARIN SODIUM
     Indication: PROPHYLAXIS
     Dosage: 4000 KIU, QD
     Route: 058
     Dates: start: 20200319, end: 20200401
  2. CARDIOASPIRIN [Concomitant]
     Active Substance: ASPIRIN
     Indication: PROPHYLAXIS
     Dosage: 100 MG, QD
     Route: 048
     Dates: start: 20170810, end: 20200401

REACTIONS (3)
  - Anaemia [Fatal]
  - Pelvic pain [Fatal]
  - Abdominal pain [Fatal]

NARRATIVE: CASE EVENT DATE: 20200401
